FAERS Safety Report 18635792 (Version 1)
Quarter: 2020Q4

REPORT INFORMATION
  Report Type: Spontaneous
  Country: US (occurrence: US)
  Receive Date: 20201218
  Receipt Date: 20201218
  Transmission Date: 20210114
  Serious: Yes (Other)
  Sender: FDA-Public Use
  Company Number: US-QUAGEN-2020QUALIT00087

PATIENT
  Age: 14 Year
  Sex: Female

DRUGS (5)
  1. TRIAMCINOLONE ACETONIDE. [Suspect]
     Active Substance: TRIAMCINOLONE ACETONIDE
     Indication: DRUG REACTION WITH EOSINOPHILIA AND SYSTEMIC SYMPTOMS
     Route: 061
  2. TRIAMCINOLONE ACETONIDE. [Suspect]
     Active Substance: TRIAMCINOLONE ACETONIDE
     Indication: ALOPECIA UNIVERSALIS
     Route: 026
  3. CLOBETASOL [Interacting]
     Active Substance: CLOBETASOL
     Indication: ALOPECIA UNIVERSALIS
     Route: 065
  4. PREDNISONE. [Suspect]
     Active Substance: PREDNISONE
     Indication: DRUG REACTION WITH EOSINOPHILIA AND SYSTEMIC SYMPTOMS
     Route: 065
  5. METHOTREXATE. [Interacting]
     Active Substance: METHOTREXATE
     Indication: ALOPECIA UNIVERSALIS
     Route: 048

REACTIONS (2)
  - Drug ineffective for unapproved indication [Unknown]
  - Alopecia universalis [Not Recovered/Not Resolved]
